FAERS Safety Report 4698030-8 (Version None)
Quarter: 2005Q2

REPORT INFORMATION
  Report Type: 
  Country: None (occurrence: None)
  Receive Date: 20050621
  Receipt Date: 20050517
  Transmission Date: 20051028
  Serious: Yes (Death)
  Sender: FDA-Public Use
  Company Number: 11215

PATIENT
  Age: 53 Year
  Sex: Female

DRUGS (4)
  1. METHOTREXATE [Suspect]
     Indication: CENTRAL NERVOUS SYSTEM LYMPHOMA
     Dosage: 3.5 G/M2 PER_CYCLE/10 MG PER_CYCLE
  2. VINCRISTINE [Suspect]
     Indication: CENTRAL NERVOUS SYSTEM LYMPHOMA
     Dosage: 1 MG PER_CYCLE, IV
     Route: 042
  3. CYTARABINE [Suspect]
     Indication: CENTRAL NERVOUS SYSTEM LYMPHOMA
     Dosage: 20 MG PER_CYCLE, IT
  4. PREDNISOLONE [Suspect]
     Indication: CENTRAL NERVOUS SYSTEM LYMPHOMA
     Dosage: 40 MG PER_CYCLE,IT

REACTIONS (7)
  - B-CELL LYMPHOMA RECURRENT [None]
  - CENTRAL NERVOUS SYSTEM LYMPHOMA [None]
  - DEMENTIA [None]
  - MALIGNANT NEOPLASM PROGRESSION [None]
  - MEMORY IMPAIRMENT [None]
  - METASTASES TO BREAST [None]
  - THERAPEUTIC RESPONSE DECREASED [None]
